FAERS Safety Report 21627803 (Version 1)
Quarter: 2022Q4

REPORT INFORMATION
  Report Type: Spontaneous
  Country: US (occurrence: US)
  Receive Date: 20221122
  Receipt Date: 20221122
  Transmission Date: 20230113
  Serious: Yes (Hospitalization)
  Sender: FDA-Public Use
  Company Number: US-MYLANLABS-2022M1129317

PATIENT
  Sex: Male

DRUGS (5)
  1. TICAGRELOR [Suspect]
     Active Substance: TICAGRELOR
     Indication: Antiplatelet therapy
     Dosage: 90 MILLIGRAM
     Route: 048
  2. TICAGRELOR [Suspect]
     Active Substance: TICAGRELOR
     Dosage: 180 MILLIGRAM
     Route: 048
  3. ASPIRIN [Concomitant]
     Active Substance: ASPIRIN
     Indication: Antiplatelet therapy
     Dosage: 650 MILLIGRAM
     Route: 048
  4. TIROFIBAN [Concomitant]
     Active Substance: TIROFIBAN
     Indication: Antiplatelet therapy
     Dosage: UNK (BOLUS AND THEN INFUSION)
     Route: 042
  5. TIROFIBAN [Concomitant]
     Active Substance: TIROFIBAN
     Dosage: UNK (BOLUS AND THEN INFUSION)
     Route: 042

REACTIONS (1)
  - Drug ineffective [Unknown]
